FAERS Safety Report 7586853-7 (Version None)
Quarter: 2011Q3

REPORT INFORMATION
  Report Type: 
  Country: None (occurrence: None)
  Receive Date: 20110701
  Receipt Date: 20110627
  Transmission Date: 20111222
  Serious: Yes (Hospitalization)
  Sender: FDA-Public Use
  Company Number: US-GENZYME-FABR-1001994

PATIENT
  Sex: Male
  Weight: 53.515 kg

DRUGS (1)
  1. FABRAZYME [Suspect]
     Indication: FABRY'S DISEASE
     Dosage: 65 MG, Q2W
     Route: 042
     Dates: start: 20090901

REACTIONS (6)
  - DIARRHOEA [None]
  - WEIGHT DECREASED [None]
  - VOMITING [None]
  - VISION BLURRED [None]
  - DIZZINESS [None]
  - NAUSEA [None]
